FAERS Safety Report 5022302-0 (Version None)
Quarter: 2006Q2

REPORT INFORMATION
  Report Type: 
  Country: None (occurrence: None)
  Receive Date: 20060609
  Receipt Date: 20060605
  Transmission Date: 20061013
  Serious: Yes (Hospitalization)
  Sender: FDA-Public Use
  Company Number: JP-JPN-A200601865

PATIENT
  Sex: Female

DRUGS (1)
  1. MODACIN [Suspect]
     Route: 042

REACTIONS (1)
  - PLATELET COUNT DECREASED [None]
